FAERS Safety Report 5835195-6 (Version None)
Quarter: 2008Q3

REPORT INFORMATION
  Report Type: 
  Country: None (occurrence: None)
  Receive Date: 20080804
  Receipt Date: 20080724
  Transmission Date: 20090109
  Serious: Yes (Death, Hospitalization)
  Sender: FDA-Public Use
  Company Number: 028-C5013-08042067

PATIENT
  Age: 65 Year
  Sex: Male
  Weight: 68.6 kg

DRUGS (9)
  1. CC-5013 (LENALIDOMIDE) (25 MILLIGRAM, CAPSULES) [Suspect]
     Indication: NON-HODGKIN'S LYMPHOMA
     Dosage: 25 MG, OD X21 DAYS / 28 DAY CYCLE, ORAL
     Dates: start: 20080103, end: 20080430
  2. BISACODYL (BISACODYL) (SUPPOSITORY) [Concomitant]
  3. LACTULOSE [Concomitant]
  4. LORAZEPAM [Concomitant]
  5. RABEPRAZOLE (RABEPRAZOLE) (20 MILLIGRAM, TABLETS) [Concomitant]
  6. MORPHINE [Concomitant]
  7. ACETAMINOPHEN (PARACETAMOL) (325 MILLIGRAM) [Concomitant]
  8. GRAVOL TAB [Concomitant]
  9. MORPHINE SULFATE               (MORPHINE SULFATE) (10 MILLIGRAM/MILLIL [Concomitant]

REACTIONS (17)
  - DIARRHOEA [None]
  - DRUG INEFFECTIVE [None]
  - GENERAL PHYSICAL HEALTH DETERIORATION [None]
  - HAEMOGLOBIN DECREASED [None]
  - HYDRONEPHROSIS [None]
  - METASTASES TO ABDOMINAL WALL [None]
  - METASTASES TO DIAPHRAGM [None]
  - METASTASES TO LIVER [None]
  - METASTASES TO PLEURA [None]
  - METASTASES TO URINARY TRACT [None]
  - METASTASIS [None]
  - NAUSEA [None]
  - NEPHROLITHIASIS [None]
  - PLATELET COUNT DECREASED [None]
  - SMALL INTESTINAL OBSTRUCTION [None]
  - URETERIC OBSTRUCTION [None]
  - WHITE BLOOD CELL COUNT DECREASED [None]
